FAERS Safety Report 5396534-6 (Version None)
Quarter: 2007Q3

REPORT INFORMATION
  Report Type: 
  Country: None (occurrence: None)
  Receive Date: 20070725
  Receipt Date: 20070719
  Transmission Date: 20080115
  Serious: Yes (Other)
  Sender: FDA-Public Use
  Company Number: AU-AVENTIS-200713468GDDC

PATIENT
  Age: 82 Year
  Sex: Female

DRUGS (2)
  1. LANTUS [Suspect]
     Route: 058
  2. NOVORAPID [Concomitant]
     Dosage: DOSE: UNK

REACTIONS (1)
  - HALLUCINATION [None]
